FAERS Safety Report 25984389 (Version 1)
Quarter: 2025Q4

REPORT INFORMATION
  Report Type: Spontaneous
  Country: CH (occurrence: CH)
  Receive Date: 20251031
  Receipt Date: 20251031
  Transmission Date: 20260117
  Serious: Yes (Hospitalization)
  Sender: MERCK SHARP & DOHME LLC
  Company Number: None

PATIENT
  Sex: Male
  Weight: 2.67 kg

DRUGS (19)
  1. EMEND [Suspect]
     Active Substance: APREPITANT
     Dosage: TIME INTERVAL: AS NECESSARY: MAX 1X/J
     Route: 064
  2. FOLIC ACID [Suspect]
     Active Substance: FOLIC ACID
     Route: 064
     Dates: start: 20250422, end: 20250725
  3. SKYRIZI [Suspect]
     Active Substance: RISANKIZUMAB-RZAA
     Route: 064
     Dates: start: 202108, end: 202308
  4. SKYRIZI [Suspect]
     Active Substance: RISANKIZUMAB-RZAA
     Dosage: TIME INTERVAL: 1 TOTAL
     Route: 064
     Dates: start: 20240923, end: 20240923
  5. SKYRIZI [Suspect]
     Active Substance: RISANKIZUMAB-RZAA
     Dosage: TIME INTERVAL: 1 TOTAL
     Route: 064
     Dates: start: 20241021, end: 20241021
  6. HYDROXYZINE [Suspect]
     Active Substance: HYDROXYZINE HYDROCHLORIDE
     Route: 064
     Dates: start: 20250418, end: 20250422
  7. METOCLOPRAMIDE [Suspect]
     Active Substance: METOCLOPRAMIDE
     Route: 064
     Dates: start: 20250410, end: 20250418
  8. SERTRALINE [Suspect]
     Active Substance: SERTRALINE HYDROCHLORIDE
     Route: 064
     Dates: start: 20250418, end: 20250420
  9. UNSPECIFIED INGREDIENT [Suspect]
     Active Substance: UNSPECIFIED INGREDIENT
     Route: 064
  10. ACETAMINOPHEN [Suspect]
     Active Substance: ACETAMINOPHEN
     Dosage: TIME INTERVAL: AS NECESSARY: MAX 4X/J
     Route: 064
  11. CALCIUM CARBONATE\CHOLECALCIFEROL [Suspect]
     Active Substance: CALCIUM CARBONATE\CHOLECALCIFEROL
     Dosage: 1000MG/800UI
     Route: 064
     Dates: end: 20250531
  12. MORPHINE SULFATE [Suspect]
     Active Substance: MORPHINE SULFATE
     Route: 064
     Dates: start: 20250414, end: 20250417
  13. MORPHINE SULFATE [Suspect]
     Active Substance: MORPHINE SULFATE
     Route: 064
     Dates: start: 20250417, end: 20250421
  14. SODIUM PHOSPHATE [Suspect]
     Active Substance: SODIUM PHOSPHATE
     Route: 064
     Dates: start: 20250424, end: 20250518
  15. PREGABALIN [Suspect]
     Active Substance: PREGABALIN
     Route: 064
     Dates: start: 20250418, end: 20250419
  16. BIPERIDEN [Suspect]
     Active Substance: BIPERIDEN
     Route: 064
     Dates: start: 20250420, end: 20250610
  17. PAROXETINE [Suspect]
     Active Substance: PAROXETINE
     Dosage: TIME INTERVAL: 1 TOTAL
     Route: 064
     Dates: start: 20250429, end: 20250429
  18. VALTREX [Suspect]
     Active Substance: VALACYCLOVIR HYDROCHLORIDE
     Route: 064
     Dates: start: 20250614, end: 20250617
  19. MOVICOL [Suspect]
     Active Substance: POLYETHYLENE GLYCOL 3350\POTASSIUM CHLORIDE\SODIUM BICARBONATE\SODIUM CHLORIDE
     Route: 064

REACTIONS (2)
  - Small for dates baby [Recovering/Resolving]
  - Foetal exposure during pregnancy [Recovered/Resolved]

NARRATIVE: CASE EVENT DATE: 20250623
